FAERS Safety Report 6078032-X (Version None)
Quarter: 2009Q1

REPORT INFORMATION
  Report Type: 
  Country: None (occurrence: None)
  Receive Date: 20090121
  Receipt Date: 20080125
  Transmission Date: 20090719
  Serious: Yes (Other)
  Sender: FDA-Public Use
  Company Number: HQWYE893908APR05

PATIENT
  Age: 59 Year
  Sex: Female
  Weight: 90.8 kg

DRUGS (4)
  1. PREMPRO [Suspect]
     Dosage: ORAL
     Route: 048
     Dates: start: 19960101, end: 20010101
  2. MEDROXYPROGESTERONE [Suspect]
  3. PREMARIN [Suspect]
     Dosage: ORAL
     Route: 048
     Dates: start: 19891201, end: 19960101
  4. PROVERA [Suspect]

REACTIONS (1)
  - BREAST CANCER [None]
